FAERS Safety Report 9571904 (Version 6)
Quarter: 2014Q4

REPORT INFORMATION
  Report Type: Spontaneous
  Country: US (occurrence: US)
  Receive Date: 20131001
  Receipt Date: 20141021
  Transmission Date: 20150529
  Serious: Yes (Other)
  Sender: FDA-Public Use
  Company Number: US-AMGEN-USASP2013066492

PATIENT
  Age: 65 Year
  Sex: Male
  Weight: 92.97 kg

DRUGS (9)
  1. TELAPREVIR [Concomitant]
     Active Substance: TELAPREVIR
     Indication: HEPATITIS C
     Dosage: UNK
  2. PRAVASTATIN [Concomitant]
     Active Substance: PRAVASTATIN\PRAVASTATIN SODIUM
     Dosage: 40 MG, QD
     Route: 048
  3. PEGASYS [Concomitant]
     Active Substance: PEGINTERFERON ALFA-2A
     Indication: HEPATITIS C
     Dosage: UNK
     Dates: start: 201210, end: 20130806
  4. FOLIC ACID. [Concomitant]
     Active Substance: FOLIC ACID
     Dosage: 400 MUG, QD
     Route: 048
  5. AMLODIPINE [Concomitant]
     Active Substance: AMLODIPINE BESYLATE
     Indication: HYPERTENSION
     Dosage: 5 MG, QD
     Route: 048
  6. PROCRIT [Suspect]
     Active Substance: ERYTHROPOIETIN
     Indication: ANAEMIA
     Dosage: 40000 UNIT, QWK
     Route: 058
     Dates: start: 20121029
  7. RIBAVIRIN. [Suspect]
     Active Substance: RIBAVIRIN
     Indication: HEPATITIS C
     Dosage: UNK
     Route: 065
     Dates: end: 20130731
  8. MULTIVITAMIN                       /07504101/ [Concomitant]
     Active Substance: VITAMINS
     Dosage: UNK UNK, QD
     Route: 048
  9. GLIPIZIDE. [Concomitant]
     Active Substance: GLIPIZIDE
     Indication: DIABETES MELLITUS
     Dosage: 2.5 MG, QD
     Route: 048

REACTIONS (7)
  - No therapeutic response [Unknown]
  - Anaemia [Not Recovered/Not Resolved]
  - Bone marrow failure [Unknown]
  - Anti-erythropoietin antibody positive [Unknown]
  - Hepatic cirrhosis [Unknown]
  - Neutralising antibodies positive [Unknown]
  - Non-neutralising antibodies positive [Unknown]

NARRATIVE: CASE EVENT DATE: 20130426
